FAERS Safety Report 23672926 (Version 1)
Quarter: 2024Q1

REPORT INFORMATION
  Report Type: Spontaneous
  Country: US (occurrence: None)
  Receive Date: 20240325
  Receipt Date: 20240325
  Transmission Date: 20240410
  Serious: Yes (Death, Life-Threatening, Hospitalization, Other)
  Sender: FDA-Public Use
  Company Number: None

PATIENT
  Age: 19 Year
  Sex: Female
  Weight: 97.6 kg

DRUGS (1)
  1. ASPARLAS [Suspect]
     Active Substance: CALASPARGASE PEGOL-MKNL
     Indication: B precursor type acute leukaemia
     Dosage: OTHER FREQUENCY : PER PROTOCOL;?
     Route: 042
     Dates: start: 20230118, end: 20230914

REACTIONS (8)
  - Hypertriglyceridaemia [None]
  - Pyrexia [None]
  - Neutropenia [None]
  - Atrial thrombosis [None]
  - Septic pulmonary embolism [None]
  - Endocarditis [None]
  - Hepatic failure [None]
  - Venoocclusive liver disease [None]

NARRATIVE: CASE EVENT DATE: 20230306
